FAERS Safety Report 9432573 (Version 5)
Quarter: 2013Q4

REPORT INFORMATION
  Report Type: Report from Study
  Country: ES (occurrence: ES)
  Receive Date: 20130731
  Receipt Date: 20131120
  Transmission Date: 20140711
  Serious: Yes (Other)
  Sender: FDA-Public Use
  Company Number: ES-009507513-1307ESP015306

PATIENT
  Age: 48 Year
  Sex: Male
  Weight: 60 kg

DRUGS (7)
  1. BOCEPREVIR [Suspect]
     Indication: HEPATITIS C
     Dosage: TOTAL DAILY DOSE: 2400 MG, QD; STRENGTH: 200 MG
     Route: 048
     Dates: start: 20120625, end: 20130203
  2. PEGASYS [Suspect]
     Indication: HEPATITIS C
     Dosage: STRENGTH: 180 MCG; TOTAL DAILY DOSE: 180MCG, QW
     Route: 058
     Dates: start: 20120528, end: 201207
  3. PEGASYS [Suspect]
     Indication: HEPATITIS C
     Dosage: 135 MICROGRAM, QW
     Route: 058
     Dates: start: 20120730, end: 20120813
  4. PEGASYS [Suspect]
     Indication: HEPATITIS C
     Dosage: 90 MICROGRAM, QW
     Route: 058
     Dates: start: 20120813, end: 20130428
  5. COPEGUS [Suspect]
     Indication: HEPATITIS C
     Dosage: TOTAL DAILY DOSE: 1000 MG, QD
     Route: 048
     Dates: start: 20120528, end: 201207
  6. COPEGUS [Suspect]
     Dosage: TOTAL DAILY DOSE: 800MG, QD
     Route: 048
     Dates: start: 20120730, end: 20120807
  7. COPEGUS [Suspect]
     Dosage: TOTAL DAILY DOSE: 600 MG, QD
     Route: 048
     Dates: start: 20120807, end: 20130428

REACTIONS (1)
  - Pancytopenia [Recovered/Resolved]
